FAERS Safety Report 6421966-4 (Version None)
Quarter: 2009Q4

REPORT INFORMATION
  Report Type: 
  Country: None (occurrence: None)
  Receive Date: 20091030
  Receipt Date: 20091020
  Transmission Date: 20100525
  Serious: Yes (Hospitalization, Other)
  Sender: FDA-Public Use
  Company Number: BR-ABBOTT-09P-020-0603860-00

PATIENT
  Sex: Female
  Weight: 92 kg

DRUGS (7)
  1. HUMIRA [Suspect]
     Indication: RHEUMATOID ARTHRITIS
     Route: 058
     Dates: start: 20060101, end: 20090901
  2. FERROUS SULFATE W/FOLIC ACID [Concomitant]
     Indication: DRUG USE FOR UNKNOWN INDICATION
     Route: 048
     Dates: start: 20090920
  3. CHLOROQUINE/SERTRALINE/FAMOTIDINE [Concomitant]
     Indication: RHEUMATOID ARTHRITIS
     Dosage: 124MG/75MG/40MG
     Route: 048
  4. PRINIVIL [Concomitant]
     Indication: HYPERTENSION
     Route: 048
  5. ATENOLOL [Concomitant]
     Indication: HYPERTENSION
     Route: 048
  6. RIVOTRIL [Concomitant]
     Indication: DEPRESSION
     Dosage: 1 TABLET
     Route: 048
  7. RIVOTRIL [Concomitant]
     Indication: MUSCLE RELAXANT THERAPY

REACTIONS (6)
  - CEREBRAL ISCHAEMIA [None]
  - FALL [None]
  - PNEUMONIA [None]
  - RENAL DISORDER [None]
  - SPINAL DISORDER [None]
  - URINARY TRACT INFECTION [None]
